FAERS Safety Report 22047542 (Version 1)
Quarter: 2023Q1

REPORT INFORMATION
  Report Type: Spontaneous
  Country: US (occurrence: US)
  Receive Date: 20230301
  Receipt Date: 20230301
  Transmission Date: 20230418
  Serious: Yes (Life-Threatening, Hospitalization, Other)
  Sender: FDA-Public Use
  Company Number: None

PATIENT
  Age: 37 Year
  Sex: Male

DRUGS (16)
  1. LIDOCAINE [Suspect]
     Active Substance: LIDOCAINE
     Indication: Local anaesthesia
     Dosage: 2%
     Route: 002
  2. LIDOCAINE [Suspect]
     Active Substance: LIDOCAINE
     Dosage: 2%
     Route: 065
  3. LIDOCAINE [Suspect]
     Active Substance: LIDOCAINE
     Route: 065
  4. ARTICAINE [Suspect]
     Active Substance: ARTICAINE
     Indication: Local anaesthesia
     Dosage: 4%
     Route: 002
  5. ARTICAINE [Suspect]
     Active Substance: ARTICAINE
     Dosage: 4%
     Route: 065
  6. ARTICAINE [Suspect]
     Active Substance: ARTICAINE
     Route: 065
  7. MIDAZOLAM [Suspect]
     Active Substance: MIDAZOLAM
     Indication: General anaesthesia
     Route: 042
  8. MIDAZOLAM [Suspect]
     Active Substance: MIDAZOLAM
     Indication: Sedation
  9. PROPOFOL [Suspect]
     Active Substance: PROPOFOL
     Indication: General anaesthesia
     Route: 065
  10. PROPOFOL [Suspect]
     Active Substance: PROPOFOL
     Route: 065
  11. SUCCINYLCHOLINE CHLORIDE [Suspect]
     Active Substance: SUCCINYLCHOLINE CHLORIDE
     Indication: General anaesthesia
     Route: 065
  12. OXYCODONE [Concomitant]
     Active Substance: OXYCODONE
     Indication: Product used for unknown indication
     Route: 065
  13. Dicotyl Sodium Sulfosuccinate [Concomitant]
     Indication: Product used for unknown indication
     Route: 065
  14. SENNA LEAF [Concomitant]
     Active Substance: SENNA LEAF
     Indication: Product used for unknown indication
     Route: 065
  15. EPINEPHRINE [Concomitant]
     Active Substance: EPINEPHRINE
     Indication: Product used for unknown indication
     Route: 065
  16. SODIUM CHLORIDE [Concomitant]
     Active Substance: SODIUM CHLORIDE
     Indication: Product used for unknown indication
     Route: 065

REACTIONS (4)
  - Electrocardiogram ST segment elevation [Recovered/Resolved]
  - Toxicity to various agents [Recovered/Resolved]
  - Hypoxia [Recovered/Resolved]
  - Overdose [Unknown]
